FAERS Safety Report 11094091 (Version 1)
Quarter: 2015Q2

REPORT INFORMATION
  Report Type: Spontaneous
  Country: MT (occurrence: MT)
  Receive Date: 20150506
  Receipt Date: 20150506
  Transmission Date: 20150821
  Serious: Yes (Death, Hospitalization, Other)
  Sender: FDA-Public Use
  Company Number: PHHY2015MT054063

PATIENT
  Age: 79 Year
  Sex: Male

DRUGS (1)
  1. CATAFLAM [Suspect]
     Active Substance: DICLOFENAC POTASSIUM
     Indication: MUSCLE STRAIN
     Dosage: UNK
     Route: 065
     Dates: start: 201504

REACTIONS (3)
  - Intentional product misuse [Unknown]
  - Haematemesis [Unknown]
  - Myocardial infarction [Fatal]
